FAERS Safety Report 9286015 (Version 5)
Quarter: 2014Q2

REPORT INFORMATION
  Report Type: Report from Study
  Country: US (occurrence: US)
  Receive Date: 20130513
  Receipt Date: 20140512
  Transmission Date: 20141212
  Serious: Yes (Death, Hospitalization)
  Sender: FDA-Public Use
  Company Number: US-BAYER-2012-116027

PATIENT
  Age: 39 Year
  Sex: Female
  Weight: 39.73 kg

DRUGS (8)
  1. REGORAFENIB [Suspect]
     Indication: COLON CANCER METASTATIC
     Dosage: DAILY DOSE 160 MG
     Route: 048
     Dates: start: 20120928, end: 20121019
  2. ZOFRAN [Concomitant]
     Indication: NAUSEA
     Dosage: DAILY DOSE 24 MG
     Route: 048
     Dates: start: 2010
  3. IMODIUM [Concomitant]
     Indication: DIARRHOEA
     Dosage: DAILY DOSE 12 MG
     Route: 048
     Dates: start: 2010
  4. OXYCONTIN [Concomitant]
     Indication: PAIN
     Dosage: DAILY DOSE 480 MG
     Route: 048
     Dates: start: 20120928
  5. OXYCODONE [Concomitant]
     Indication: PAIN
     Dosage: DAILY DOSE 30 MG
     Route: 048
     Dates: start: 20120928
  6. REGLAN [Concomitant]
     Indication: NAUSEA
     Dosage: DAILY DOSE 40 MG
     Route: 048
     Dates: start: 2011
  7. FENTANYL [Concomitant]
     Indication: PAIN
     Dosage: DAILY DOSE 200 ?G
     Route: 062
     Dates: start: 201208, end: 20120928
  8. NEUPOGEN [Concomitant]

REACTIONS (1)
  - Sepsis [Fatal]
